FAERS Safety Report 23066762 (Version 1)
Quarter: 2023Q4

REPORT INFORMATION
  Report Type: Spontaneous
  Country: US (occurrence: US)
  Receive Date: 20231016
  Receipt Date: 20231016
  Transmission Date: 20240110
  Serious: Yes (Other)
  Sender: FDA-Public Use
  Company Number: US-GLAXOSMITHKLINE-US2023AMR138942

PATIENT

DRUGS (1)
  1. BENLYSTA [Suspect]
     Active Substance: BELIMUMAB
     Indication: Chronic cutaneous lupus erythematosus
     Dosage: 200 MG/ML
     Route: 058

REACTIONS (1)
  - Tuberculosis [Unknown]
